FAERS Safety Report 6846952-1 (Version None)
Quarter: 2010Q3

REPORT INFORMATION
  Report Type: 
  Country: None (occurrence: None)
  Receive Date: 20100713
  Receipt Date: 20100709
  Transmission Date: 20110219
  Serious: Yes (Hospitalization)
  Sender: FDA-Public Use
  Company Number: 2010SP037984

PATIENT
  Age: 58 Year
  Sex: Male

DRUGS (1)
  1. NOXAFIL [Suspect]
     Indication: PRODUCT USED FOR UNKNOWN INDICATION
     Dosage: PO
     Route: 048
     Dates: start: 20090101, end: 20090701

REACTIONS (3)
  - DRUG TOXICITY [None]
  - LICHENOID KERATOSIS [None]
  - TOXIC SKIN ERUPTION [None]
